FAERS Safety Report 8445007-2 (Version None)
Quarter: 2012Q2

REPORT INFORMATION
  Report Type: 
  Country: None (occurrence: None)
  Receive Date: 20120618
  Receipt Date: 20120607
  Transmission Date: 20120825
  Serious: No
  Sender: FDA-Public Use
  Company Number: CA-JNJFOC-20120604849

PATIENT
  Sex: Female
  Weight: 61.3 kg

DRUGS (8)
  1. OMEGA 3-6-9 [Concomitant]
  2. DICLECTIN [Concomitant]
  3. REMICADE [Suspect]
     Indication: CROHN'S DISEASE
     Route: 042
     Dates: start: 20090602
  4. ZANTAC [Concomitant]
  5. VITAMIN D [Concomitant]
  6. CALCIUM [Concomitant]
  7. FOLIC ACID [Concomitant]
  8. MULTI-VITAMINS [Concomitant]

REACTIONS (2)
  - HERPES ZOSTER [None]
  - SKIN DISORDER [None]
